FAERS Safety Report 21733422 (Version 1)
Quarter: 2022Q4

REPORT INFORMATION
  Report Type: Spontaneous
  Country: RU (occurrence: None)
  Receive Date: 20221215
  Receipt Date: 20221215
  Transmission Date: 20230113
  Serious: Yes (Other)
  Sender: FDA-Public Use
  Company Number: RU-ROCHE-3235358

PATIENT
  Age: 50 Year
  Sex: Male

DRUGS (2)
  1. ATEZOLIZUMAB [Suspect]
     Active Substance: ATEZOLIZUMAB
     Indication: Hepatocellular carcinoma
     Dosage: PD-L1 INHIBITOR ATEZOLIZUMAB 1200 MG ONCE EVERY 21 DAYS
     Route: 041
  2. BEVACIZUMAB [Suspect]
     Active Substance: BEVACIZUMAB
     Indication: Hepatocellular carcinoma
     Dosage: ANTI-VEGF MAB BEVACIZUMAB 15 MG/KG ONCE EVERY 21 DAYS
     Route: 042

REACTIONS (6)
  - Pancreatitis chronic [Unknown]
  - Poisoning [Unknown]
  - Diarrhoea [Unknown]
  - Pyrexia [Unknown]
  - Asthenia [Unknown]
  - Colitis [Unknown]
